FAERS Safety Report 10897937 (Version 1)
Quarter: 2015Q1

REPORT INFORMATION
  Report Type: Spontaneous
  Country: US (occurrence: None)
  Receive Date: 20150302
  Receipt Date: 20150302
  Transmission Date: 20150721
  Serious: Yes (Other)
  Sender: FDA-Public Use
  Company Number: None

PATIENT
  Age: 40 Year
  Sex: Male

DRUGS (1)
  1. ENBREL [Suspect]
     Active Substance: ETANERCEPT
     Indication: PSORIASIS
     Route: 048
     Dates: start: 20110616

REACTIONS (6)
  - Colitis [None]
  - Gastric infection [None]
  - Arthralgia [None]
  - Therapy cessation [None]
  - Psoriasis [None]
  - Back pain [None]

NARRATIVE: CASE EVENT DATE: 20150118
